FAERS Safety Report 4932037-8 (Version None)
Quarter: 2006Q1

REPORT INFORMATION
  Report Type: 
  Country: None (occurrence: None)
  Receive Date: 20060303
  Receipt Date: 20060223
  Transmission Date: 20060701
  Serious: Yes (Hospitalization, Other)
  Sender: FDA-Public Use
  Company Number: US-AVENTIS-200611815US

PATIENT
  Sex: Female

DRUGS (9)
  1. LANTUS [Suspect]
     Indication: DIABETES MELLITUS INSULIN-DEPENDENT
     Dosage: DOSE UNIT: UNITS
     Dates: start: 20051101, end: 20060221
  2. LANTUS [Suspect]
     Dosage: DOSE UNIT: UNITS
     Dates: start: 20060223
  3. DILAUDID [Concomitant]
     Dosage: DOSE: UNKNOWN
  4. PREVACID [Concomitant]
     Dosage: DOSE: UNKNOWN
  5. SYNTHROID [Concomitant]
     Dosage: DOSE: UNKNOWN
  6. COLACE [Concomitant]
     Dosage: DOSE: UNKNOWN
  7. ZOFRAN [Concomitant]
     Dosage: DOSE: UNKNOWN
  8. ORAL CONTRACEPTIVE [Concomitant]
     Dosage: DOSE: UNKNOWN
  9. REGULAR INSULIN [Concomitant]
     Dosage: DOSE: UNKNOWN

REACTIONS (5)
  - BLOOD INSULIN INCREASED [None]
  - DIABETIC KETOACIDOSIS [None]
  - HYPERGLYCAEMIA [None]
  - HYPOGLYCAEMIA [None]
  - PANCREATITIS [None]
